FAERS Safety Report 5176616-4 (Version None)
Quarter: 2006Q4

REPORT INFORMATION
  Report Type: 
  Country: None (occurrence: None)
  Receive Date: 20061207
  Receipt Date: 20061128
  Transmission Date: 20070319
  Serious: Yes (Hospitalization)
  Sender: FDA-Public Use
  Company Number: 2006132329

PATIENT
  Age: 17 Year
  Sex: Female

DRUGS (1)
  1. ZOLOFT [Suspect]
     Indication: FEELING ABNORMAL
     Dates: start: 20060101, end: 20060101

REACTIONS (3)
  - MUSCLE SPASMS [None]
  - OVERDOSE [None]
  - TACHYCARDIA [None]
